FAERS Safety Report 4340413-X (Version None)
Quarter: 2004Q2

REPORT INFORMATION
  Report Type: 
  Country: None (occurrence: None)
  Receive Date: 20040414
  Receipt Date: 20040330
  Transmission Date: 20050107
  Serious: Yes (Hospitalization)
  Sender: FDA-Public Use
  Company Number: D01200401059

PATIENT
  Age: 57 Year
  Sex: Male

DRUGS (9)
  1. CISPLATIN [Suspect]
     Indication: CARCINOMA
     Dates: start: 20040322, end: 20040322
  2. ALBUTEROL SULFATE [Concomitant]
  3. ACETAMINOPHEN [Concomitant]
  4. LORAZEPAM [Concomitant]
  5. ONDANSETRON HCL [Concomitant]
  6. DEXAMETHASONE [Concomitant]
  7. METOCLOPRAMIDE [Concomitant]
  8. DOCUSATE SODIUM/SENNA [Concomitant]
  9. CYCLIZINE [Concomitant]

REACTIONS (3)
  - DYSPHONIA [None]
  - DYSPNOEA [None]
  - STRIDOR [None]
